FAERS Safety Report 20281946 (Version 2)
Quarter: 2022Q4

REPORT INFORMATION
  Report Type: Spontaneous
  Country: FR (occurrence: FR)
  Receive Date: 20220103
  Receipt Date: 20221018
  Transmission Date: 20230113
  Serious: Yes (Other)
  Sender: FDA-Public Use
  Company Number: None

PATIENT
  Age: 18 Year
  Sex: Female

DRUGS (3)
  1. TRAMADOL [Suspect]
     Active Substance: TRAMADOL
     Indication: Product used for unknown indication
     Dosage: 50 MILLIGRAM ( 6 TABLETS REPORTED)
     Route: 048
     Dates: start: 20210928, end: 20210928
  2. TRAMADOL [Suspect]
     Active Substance: TRAMADOL
     Dosage: 50 MILLIGRAM, 1/DAY
     Route: 048
     Dates: start: 20210928, end: 20210928
  3. TRAMADOL [Suspect]
     Active Substance: TRAMADOL
     Dosage: 10 DOSAGE FORM, 1/DAY
     Route: 048
     Dates: start: 2020, end: 20211001

REACTIONS (3)
  - Poisoning deliberate [Recovered/Resolved]
  - Drug dependence [Not Recovered/Not Resolved]
  - Intentional overdose [Unknown]

NARRATIVE: CASE EVENT DATE: 20200101
